FAERS Safety Report 5360497-X (Version None)
Quarter: 2007Q2

REPORT INFORMATION
  Report Type: 
  Country: None (occurrence: None)
  Receive Date: 20070618
  Receipt Date: 20070611
  Transmission Date: 20071010
  Serious: Yes (Other)
  Sender: FDA-Public Use
  Company Number: B0472457A

PATIENT
  Age: 8 Year
  Sex: Male

DRUGS (6)
  1. RELENZA [Suspect]
     Indication: INFLUENZA
     Dosage: 10MG TWICE PER DAY
     Route: 055
     Dates: start: 20070127, end: 20070127
  2. ASVERIN [Concomitant]
     Indication: BRONCHITIS
     Dosage: 30MG PER DAY
     Route: 048
     Dates: start: 20070127
  3. VENETLIN [Concomitant]
     Indication: BRONCHITIS
     Dosage: 6MG PER DAY
     Route: 048
     Dates: start: 20070127
  4. MUCODYNE [Concomitant]
     Indication: BRONCHITIS
     Dosage: 750MG PER DAY
     Route: 048
     Dates: start: 20070127
  5. CALONAL [Concomitant]
     Indication: BRONCHITIS
     Route: 048
  6. NAUZELIN [Concomitant]
     Indication: GASTROENTERITIS
     Route: 054

REACTIONS (4)
  - ABDOMINAL PAIN UPPER [None]
  - ABNORMAL BEHAVIOUR [None]
  - AGITATION [None]
  - FAECAL INCONTINENCE [None]
